FAERS Safety Report 4658545-5 (Version None)
Quarter: 2005Q2

REPORT INFORMATION
  Report Type: 
  Country: None (occurrence: None)
  Receive Date: 20050509
  Receipt Date: 20050429
  Transmission Date: 20051028
  Serious: Yes (Other)
  Sender: FDA-Public Use
  Company Number: 2005068437

PATIENT
  Sex: Female
  Weight: 58.9676 kg

DRUGS (3)
  1. CELEBREX [Suspect]
     Indication: INFLAMMATION
  2. CELEBREX [Suspect]
     Indication: PAIN
  3. TYLENOL PM    (DIPHENHYDRAMINE, PARACETAMOL) [Concomitant]

REACTIONS (6)
  - ABDOMINAL PAIN UPPER [None]
  - BACK PAIN [None]
  - CONSTIPATION [None]
  - DIFFICULTY IN WALKING [None]
  - FOOT OPERATION [None]
  - MOBILITY DECREASED [None]
